FAERS Safety Report 8487393 (Version 5)
Quarter: 2012Q4

REPORT INFORMATION
  Report Type: 
  Country: JP (occurrence: JP)
  Receive Date: 20120402
  Receipt Date: 20120921
  Transmission Date: 20130627
  Serious: Yes (Life-Threatening, Hospitalization, Other)
  Sender: FDA-Public Use
  Company Number: JP-ABBOTT-11P-087-0868801-00

PATIENT
  Age: 56 None
  Sex: Male
  Weight: 41 kg

DRUGS (9)
  1. HUMIRA [Suspect]
     Indication: CROHN^S DISEASE
     Route: 058
     Dates: start: 20110512, end: 20110512
  2. HUMIRA [Suspect]
     Dates: start: 20110526, end: 20110526
  3. HUMIRA [Suspect]
     Dates: start: 20110609, end: 20110721
  4. HUMIRA [Suspect]
     Dates: start: 20110818, end: 20110930
  5. MESALAZINE [Concomitant]
     Indication: CROHN^S DISEASE
     Route: 048
     Dates: start: 1997, end: 20111015
  6. ISONIAZID [Concomitant]
     Indication: PRODUCT USED FOR UNKNOWN INDICATION
     Dates: start: 20110512, end: 20111015
  7. SULFAMETHOXAZOLE W/TRIMETHOPRIM [Concomitant]
     Indication: PRODUCT USED FOR UNKNOWN INDICATION
     Dates: start: 20110915, end: 20111015
  8. URSODEOXYCHOLIC ACID [Concomitant]
     Indication: PRODUCT USED FOR UNKNOWN INDICATION
     Dates: end: 20111015
  9. PREDNISOLONE [Concomitant]
     Indication: CROHN^S DISEASE
     Dosage: 5 milligrams
     Dates: start: 20110412, end: 20111013

REACTIONS (20)
  - Hypokalaemia [Unknown]
  - Weight decreased [Unknown]
  - Disseminated intravascular coagulation [Unknown]
  - Anaemia [Unknown]
  - Haemorrhagic disorder [Unknown]
  - Emphysema [Unknown]
  - Septic shock [Recovered/Resolved]
  - Decreased appetite [Unknown]
  - Weight decreased [Unknown]
  - Diarrhoea [Unknown]
  - Hypophagia [Unknown]
  - Klebsiella infection [Unknown]
  - Mucous stools [Unknown]
  - Abdominal distension [Unknown]
  - Hepatic function abnormal [Unknown]
  - Hypoalbuminaemia [Unknown]
  - Disuse syndrome [Unknown]
  - Sepsis [Recovered/Resolved]
  - Dental caries [Recovered/Resolved]
  - Crohn^s disease [Unknown]
